FAERS Safety Report 15307312 (Version 1)
Quarter: 2018Q3

REPORT INFORMATION
  Report Type: Spontaneous
  Country: BE (occurrence: BE)
  Receive Date: 20180822
  Receipt Date: 20180822
  Transmission Date: 20181010
  Serious: Yes (Hospitalization)
  Sender: FDA-Public Use
  Company Number: BE-PFIZER INC-2018333266

PATIENT
  Age: 56 Year
  Sex: Female
  Weight: 67 kg

DRUGS (9)
  1. CISPLATIN. [Concomitant]
     Active Substance: CISPLATIN
     Indication: METASTATIC NEOPLASM
     Dosage: 45 MG, MONTHLY, EVERY 4 WEEKS
     Route: 042
     Dates: start: 20120818, end: 20120904
  2. MS CONTIN [Concomitant]
     Active Substance: MORPHINE SULFATE
     Indication: PAIN
     Dosage: 10 MG, 1X/DAY
     Route: 048
  3. CISPLATIN. [Concomitant]
     Active Substance: CISPLATIN
     Dosage: 55 MG, MONTHLY, EVERY 4 WEEKS
     Dates: start: 20120818, end: 20120904
  4. MS DIRECT [Concomitant]
     Active Substance: MORPHINE SULFATE
     Indication: PAIN
     Dosage: UNK, AS NEEDED
     Route: 048
  5. CALCIUM VITAMIN D [Concomitant]
     Active Substance: CALCIUM\VITAMIN D
     Indication: OSTEOPOROSIS
     Dosage: UNK
     Route: 048
  6. GEMCITABINE HYDROCHLORIDE. [Suspect]
     Active Substance: GEMCITABINE HYDROCHLORIDE
     Indication: METASTATIC NEOPLASM
     Dosage: 1300 MG D1? D8 EVERY 3 WEEKS. ONLY ONE DOSE RECEIVED
     Route: 042
     Dates: start: 20120904, end: 20120904
  7. EUTHYROX [Concomitant]
     Active Substance: LEVOTHYROXINE SODIUM
     Indication: HYPOTHYROIDISM
     Dosage: 125 UG, 1X/DAY
  8. CORTISONE [Concomitant]
     Active Substance: CORTISONE\HYDROCORTISONE
     Indication: PAIN
     Dosage: 5 MG, 1X/DAY
  9. XGEVA [Concomitant]
     Active Substance: DENOSUMAB
     Dosage: 1 DF, MONTHLY
     Dates: start: 20120813

REACTIONS (5)
  - Chest pain [Recovered/Resolved]
  - Sense of oppression [Recovered/Resolved]
  - Paraesthesia [Recovered/Resolved]
  - Pruritus [Recovered/Resolved]
  - Rash [Recovered/Resolved]

NARRATIVE: CASE EVENT DATE: 20120904
